FAERS Safety Report 12500713 (Version 4)
Quarter: 2017Q2

REPORT INFORMATION
  Report Type: Spontaneous
  Country: AT (occurrence: AT)
  Receive Date: 20160627
  Receipt Date: 20170418
  Transmission Date: 20170830
  Serious: Yes (Hospitalization, Disabling, Other)
  Sender: FDA-Public Use
  Company Number: AT-PFIZER INC-2016310901

PATIENT
  Age: 37 Year
  Sex: Male
  Weight: 69.5 kg

DRUGS (26)
  1. ESOMEP [Concomitant]
     Active Substance: ESOMEPRAZOLE
     Dosage: 40 MG, DAILY
     Dates: start: 20150601
  2. OLANZAPINE. [Suspect]
     Active Substance: OLANZAPINE
     Dosage: 5 MG, UNK
     Route: 048
     Dates: start: 201501, end: 20150528
  3. XYZAL [Concomitant]
     Active Substance: LEVOCETIRIZINE DIHYDROCHLORIDE
     Dosage: AS NEEDED (5-10 MG)
     Dates: start: 20150605, end: 20150608
  4. SERTRALINE HCL [Suspect]
     Active Substance: SERTRALINE HYDROCHLORIDE
     Dosage: 100 MG, UNK
     Route: 048
     Dates: start: 2009, end: 20150601
  5. RISPERDAL CONSTA [Suspect]
     Active Substance: RISPERIDONE
     Dosage: 50 MG, ONCE EVERY 2 WEEKS (3.5714 MG)
     Route: 030
     Dates: start: 2009, end: 20150521
  6. OLANZAPINE. [Suspect]
     Active Substance: OLANZAPINE
     Dosage: 15 MG, UNK
     Route: 048
     Dates: start: 20150529, end: 20150531
  7. PANTOPRAZOL [Concomitant]
     Active Substance: PANTOPRAZOLE SODIUM
     Dosage: 40 MG, UNK
     Dates: start: 20150602, end: 20150602
  8. INDERAL [Concomitant]
     Active Substance: PROPRANOLOL HYDROCHLORIDE
     Dosage: 20 MG, DAILY
     Dates: start: 20150613, end: 20150613
  9. ATARAX [Concomitant]
     Active Substance: HYDROXYZINE HYDROCHLORIDE
     Dosage: 25 MG, DAILY
     Dates: start: 20150531
  10. TEMESTA [Concomitant]
     Active Substance: LORAZEPAM
     Dosage: 2 MG, UNK
     Dates: start: 20150601, end: 20150608
  11. TEMESTA [Concomitant]
     Active Substance: LORAZEPAM
     Dosage: 1 MG, DAILY
     Dates: start: 20150609
  12. RISPERDAL [Concomitant]
     Active Substance: RISPERIDONE
     Dosage: 1 MG, DAILY
     Dates: start: 20150601, end: 20150608
  13. RISPERDAL [Concomitant]
     Active Substance: RISPERIDONE
     Dosage: 0.5 MG, UNK
     Dates: start: 20150609, end: 20150611
  14. DELPRAL [Concomitant]
     Dosage: 100 MG, DAILY
     Dates: start: 20150603, end: 20150603
  15. DELPRAL [Concomitant]
     Dosage: 300 MG, DAILY
     Dates: start: 20150605, end: 20150605
  16. INDERAL [Concomitant]
     Active Substance: PROPRANOLOL HYDROCHLORIDE
     Dosage: 30 MG, DAILY
     Dates: start: 20150614
  17. SERTRALINE HCL [Suspect]
     Active Substance: SERTRALINE HYDROCHLORIDE
     Dosage: 50 MG, UNK
     Route: 048
     Dates: start: 20150602, end: 20150605
  18. AKINETON [Concomitant]
     Active Substance: BIPERIDEN HYDROCHLORIDE
     Dosage: AS NEEDED (2-4 MG)
     Dates: start: 20150524, end: 20150531
  19. MOVICOL [Concomitant]
     Active Substance: POLYETHYLENE GLYCOL 3350\POTASSIUM CHLORIDE\SODIUM BICARBONATE\SODIUM CHLORIDE
     Dosage: UNK
  20. OLANZAPINE. [Suspect]
     Active Substance: OLANZAPINE
     Dosage: 15 MG, UNK
     Route: 048
     Dates: start: 2009, end: 201401
  21. PANTOPRAZOL [Concomitant]
     Active Substance: PANTOPRAZOLE SODIUM
     Dosage: 80 MG, UNK
     Dates: start: 20150603
  22. DELPRAL [Concomitant]
     Dosage: 200 MG, DAILY
     Dates: start: 20150604, end: 20150604
  23. LEPONEX [Concomitant]
     Active Substance: CLOZAPINE
     Dosage: 25 MG, DAILY
     Dates: start: 20150605, end: 20150617
  24. LEPONEX [Concomitant]
     Active Substance: CLOZAPINE
     Dosage: 350 MG, DAILY
     Dates: start: 20150618
  25. INDERAL [Concomitant]
     Active Substance: PROPRANOLOL HYDROCHLORIDE
     Dosage: 10 MG, DAILY
     Dates: start: 20150612, end: 20150612
  26. SUCRALAN [Concomitant]
     Dosage: UNK

REACTIONS (3)
  - Tardive dyskinesia [Recovering/Resolving]
  - Neck pain [Unknown]
  - Dystonia [Recovering/Resolving]

NARRATIVE: CASE EVENT DATE: 20140515
